FAERS Safety Report 5171024-4 (Version None)
Quarter: 2006Q4

REPORT INFORMATION
  Report Type: 
  Country: None (occurrence: None)
  Receive Date: 20061213
  Receipt Date: 20060921
  Transmission Date: 20070319
  Serious: Yes (Other)
  Sender: FDA-Public Use
  Company Number: 2006UW18502

PATIENT
  Age: 77 Year
  Sex: Female
  Weight: 103.6 kg

DRUGS (5)
  1. ARIMIDEX [Suspect]
     Indication: BREAST CANCER FEMALE
     Route: 048
     Dates: start: 20060901
  2. ALPHAGAN [Concomitant]
     Indication: GLAUCOMA
     Route: 048
  3. LUMIGAN [Concomitant]
  4. AVAPRO [Concomitant]
     Indication: DIABETES MELLITUS
     Dosage: 300 MG/12.5
     Route: 048
  5. HYDRALAZINE HCL [Concomitant]
     Indication: BLOOD PRESSURE
     Route: 048

REACTIONS (3)
  - CONDITION AGGRAVATED [None]
  - GLAUCOMA [None]
  - VISION BLURRED [None]
